FAERS Safety Report 12404315 (Version 1)
Quarter: 2016Q2

REPORT INFORMATION
  Report Type: Spontaneous
  Country: US (occurrence: US)
  Receive Date: 20160525
  Receipt Date: 20160525
  Transmission Date: 20160815
  Serious: No
  Sender: FDA-Public Use
  Company Number: US-TARO-2016TAR00075

PATIENT
  Age: 14 Month
  Sex: Female
  Weight: 10.43 kg

DRUGS (2)
  1. AMOXICILLIN. [Suspect]
     Active Substance: AMOXICILLIN
     Indication: EAR INFECTION
     Dosage: 4 ML, UNK
     Dates: start: 20160123
  2. FEVERALL [Suspect]
     Active Substance: ACETAMINOPHEN
     Indication: PYREXIA
     Dosage: 160 MG, TWICE
     Route: 054
     Dates: start: 20160123, end: 20160123

REACTIONS (3)
  - Rash generalised [Recovering/Resolving]
  - Prescribed overdose [Recovered/Resolved]
  - Rash macular [Recovered/Resolved]

NARRATIVE: CASE EVENT DATE: 20160123
